FAERS Safety Report 6880032-4 (Version None)
Quarter: 2010Q3

REPORT INFORMATION
  Report Type: 
  Country: None (occurrence: None)
  Receive Date: 20100728
  Receipt Date: 20100715
  Transmission Date: 20110219
  Serious: Yes (Hospitalization)
  Sender: FDA-Public Use
  Company Number: US-WYE-H16211910

PATIENT
  Sex: Male

DRUGS (2)
  1. TEMSIROLIMUS [Suspect]
     Indication: THYROID CANCER
     Dosage: NOT PROVIDED
     Route: 065
     Dates: start: 20100429, end: 20100702
  2. SORAFENIB [Concomitant]
     Indication: THYROID CANCER
     Dosage: NOT PROVIDED
     Route: 065
     Dates: start: 20100429, end: 20100702

REACTIONS (1)
  - LARYNGEAL HAEMORRHAGE [None]
